FAERS Safety Report 7524573-5 (Version None)
Quarter: 2011Q2

REPORT INFORMATION
  Report Type: 
  Country: None (occurrence: None)
  Receive Date: 20110601
  Receipt Date: 20110601
  Transmission Date: 20111010
  Serious: Yes (Disabling)
  Sender: FDA-Public Use
  Company Number: None

PATIENT
  Age: 86 Year
  Sex: Female
  Weight: 68.0396 kg

DRUGS (1)
  1. PRADAXA [Suspect]
     Dosage: 150MG TWICE A DAY

REACTIONS (4)
  - OVERDOSE [None]
  - HAEMATOMA [None]
  - GINGIVAL BLEEDING [None]
  - PRODUCT MEASURED POTENCY ISSUE [None]
